FAERS Safety Report 15610691 (Version 2)
Quarter: 2018Q4

REPORT INFORMATION
  Report Type: Report from Study
  Country: None (occurrence: RO)
  Receive Date: 20181113
  Receipt Date: 20181224
  Transmission Date: 20190205
  Serious: Yes (Hospitalization)
  Sender: FDA-Public Use
  Company Number: RO-ABBVIE-18S-135-2549477-00

PATIENT
  Age: 74 Year
  Sex: Male

DRUGS (1)
  1. DUODOPA [Suspect]
     Active Substance: CARBIDOPA\LEVODOPA
     Indication: PARKINSON^S DISEASE
     Dosage: DM=5.00?DC=3.00?ED=1.50?NRED=2;?DMN=0.00?DCN=0.00?EDN=0.00?NREDN=0
     Route: 050
     Dates: start: 20140324

REACTIONS (4)
  - Femur fracture [Recovering/Resolving]
  - Fall [Unknown]
  - Urinary tract infection [Recovering/Resolving]
  - Weight decreased [Recovering/Resolving]

NARRATIVE: CASE EVENT DATE: 201810
